FAERS Safety Report 15712849 (Version 1)
Quarter: 2018Q4

REPORT INFORMATION
  Report Type: Spontaneous
  Country: BR (occurrence: BR)
  Receive Date: 20181212
  Receipt Date: 20181212
  Transmission Date: 20190205
  Serious: Yes (Other)
  Sender: FDA-Public Use
  Company Number: BR-TORRENT-00004772

PATIENT
  Age: 73 Year
  Sex: Male
  Weight: 62 kg

DRUGS (4)
  1. LAMITOR 100 MG [Suspect]
     Active Substance: LAMOTRIGINE
     Indication: SEIZURE
     Dosage: UNKNOWN
     Dates: start: 2000
  2. LAMITOR CD [Suspect]
     Active Substance: LAMOTRIGINE
     Indication: SEIZURE
     Dosage: 2 TAB|TABLETS DAILY
     Route: 048
     Dates: start: 20181125, end: 20181127
  3. DEPAKENE [Concomitant]
     Active Substance: VALPROIC ACID
     Indication: SEIZURE
     Dosage: 3 TABLETS DAILY
     Route: 048
     Dates: start: 2000
  4. COMBODART [Concomitant]
     Active Substance: DUTASTERIDE\TAMSULOSIN
     Indication: PROSTATIC DYSPLASIA
     Dosage: ONE TABLET DAILY
     Dates: start: 201810

REACTIONS (4)
  - Prostatic dysplasia [Not Recovered/Not Resolved]
  - Paraesthesia [Recovered/Resolved]
  - Product dispensing error [Unknown]
  - Headache [Recovered/Resolved]

NARRATIVE: CASE EVENT DATE: 201810
